FAERS Safety Report 8338388-1 (Version None)
Quarter: 2012Q2

REPORT INFORMATION
  Report Type: 
  Country: None (occurrence: None)
  Receive Date: 20120504
  Receipt Date: 20120502
  Transmission Date: 20120825
  Serious: Yes (Death)
  Sender: FDA-Public Use
  Company Number: DK-B.I. PHARMACEUTICALS,INC./RIDGEFIELD-2012-SW-00374DB

PATIENT
  Sex: Male

DRUGS (13)
  1. THEO-DUR [Concomitant]
  2. BONIVA [Concomitant]
  3. FUROSEMIDE [Concomitant]
  4. HALCION [Concomitant]
  5. REMERON [Concomitant]
  6. CENTYL MED KALIUMKLORID [Concomitant]
  7. PRADAXA [Suspect]
     Indication: ATRIAL FIBRILLATION
     Dosage: 300 MG
     Route: 048
     Dates: start: 20111201, end: 20120228
  8. ASPIRIN [Suspect]
     Indication: THROMBOSIS PROPHYLAXIS
     Dosage: 75 MG
     Route: 048
  9. COZAAR [Concomitant]
  10. LEVOTHYROXINE SODIUM [Concomitant]
  11. CORDARONE [Concomitant]
  12. BRICANYL RETARD [Concomitant]
  13. LYRICA [Concomitant]

REACTIONS (1)
  - GASTROINTESTINAL HAEMORRHAGE [None]
